FAERS Safety Report 5496945-4 (Version None)
Quarter: 2007Q4

REPORT INFORMATION
  Report Type: 
  Country: None (occurrence: None)
  Receive Date: 20071025
  Receipt Date: 20071022
  Transmission Date: 20080405
  Serious: Yes (Other)
  Sender: FDA-Public Use
  Company Number: A0686691A

PATIENT
  Age: 4 Year
  Sex: Male
  Weight: 19.5 kg

DRUGS (1)
  1. VERAMYST [Suspect]
     Indication: RHINITIS ALLERGIC
     Dosage: 2SPR PER DAY
     Route: 045
     Dates: start: 20070820, end: 20070821

REACTIONS (5)
  - ABNORMAL BEHAVIOUR [None]
  - HALLUCINATION [None]
  - INSOMNIA [None]
  - SLEEP TERROR [None]
  - SOMNAMBULISM [None]
